FAERS Safety Report 6185122-X (Version None)
Quarter: 2009Q2

REPORT INFORMATION
  Report Type: 
  Country: None (occurrence: None)
  Receive Date: 20090507
  Receipt Date: 20090420
  Transmission Date: 20091009
  Serious: Yes (Hospitalization)
  Sender: FDA-Public Use
  Company Number: ADR1362009 (BFARM REF NO:. DE-BFARM-09047486)

PATIENT

DRUGS (9)
  1. RAMIPRIL [Suspect]
     Indication: HYPERTENSION
     Dosage: 10-0-5 MG BID
     Dates: start: 20080101, end: 20081002
  2. TRIAMPUR COMPOSITUM TABLETS (HCTZ TRIAMTERENE) [Concomitant]
  3. ACTRAPHANE HM INJECTION (INSULIN HUMAN INJECTION, ISOPHANE) [Concomitant]
  4. ALLOPURINOL [Concomitant]
  5. BETAHISTINE TABLETS [Concomitant]
  6. BONDIOL CAPSULES (ALFACALCIDOL) [Concomitant]
  7. CORDANUM TABLETS (TALINOLOL) [Concomitant]
  8. LACTULOSE ORAL EMULSION [Concomitant]
  9. SIMVASTATIN [Concomitant]

REACTIONS (4)
  - BLOOD PRESSURE SYSTOLIC INCREASED [None]
  - DRUG INTERACTION [None]
  - HYPERKALAEMIA [None]
  - RENAL FAILURE ACUTE [None]
